FAERS Safety Report 9921193 (Version 1)
Quarter: 2014Q1

REPORT INFORMATION
  Report Type: Spontaneous
  Country: US (occurrence: None)
  Receive Date: 20140221
  Receipt Date: 20140221
  Transmission Date: 20141002
  Serious: Yes (Life-Threatening, Other)
  Sender: FDA-Public Use
  Company Number: None

PATIENT
  Age: 63 Year
  Sex: Female
  Weight: 77.11 kg

DRUGS (1)
  1. PREDNISONE [Suspect]
     Indication: LOSS OF CONSCIOUSNESS
     Dosage: 2 TABS A DAY MOUTH
     Route: 048
     Dates: start: 20130407

REACTIONS (1)
  - Ventricular tachycardia [None]
